FAERS Safety Report 24328303 (Version 2)
Quarter: 2024Q3

REPORT INFORMATION
  Report Type: Report from Study
  Country: US (occurrence: US)
  Receive Date: 20240917
  Receipt Date: 20240924
  Transmission Date: 20241017
  Serious: Yes (Other)
  Sender: BAYER
  Company Number: US-BAYER-2024A130995

PATIENT
  Age: 40 Year
  Sex: Male
  Weight: 86.168 kg

DRUGS (18)
  1. ADEMPAS [Suspect]
     Active Substance: RIOCIGUAT
     Indication: Pulmonary arterial hypertension
     Dosage: UNK
     Dates: start: 20201119
  2. ADEMPAS [Suspect]
     Active Substance: RIOCIGUAT
     Indication: Pulmonary arterial hypertension
     Dosage: 2.5 MG, TID
     Route: 048
  3. FAMOTIDINE [Concomitant]
     Active Substance: FAMOTIDINE
  4. OMEPRAZOLE [Concomitant]
     Active Substance: OMEPRAZOLE
  5. LISINOPRIL [Concomitant]
     Active Substance: LISINOPRIL
  6. SULFAMETHOXAZOLE AND TRIMETHOPRIM [Concomitant]
     Active Substance: SULFAMETHOXAZOLE\TRIMETHOPRIM
  7. WATER [Concomitant]
     Active Substance: WATER
  8. TREPROSTINIL [Concomitant]
     Active Substance: TREPROSTINIL
  9. PANTOPRAZOLE SODIUM [Concomitant]
     Active Substance: PANTOPRAZOLE SODIUM
  10. LORAZEPAM [Concomitant]
     Active Substance: LORAZEPAM
  11. ONDANSETRON [Concomitant]
     Active Substance: ONDANSETRON
  12. SUCRALFATE [Concomitant]
     Active Substance: SUCRALFATE
  13. OPSUMIT [Concomitant]
     Active Substance: MACITENTAN
  14. SPIRONOLACTONE [Concomitant]
     Active Substance: SPIRONOLACTONE
  15. OXYGEN [Concomitant]
     Active Substance: OXYGEN
  16. TYLENOL EXTRA STRENGTH [Concomitant]
     Active Substance: ACETAMINOPHEN
  17. NAPROXEN [Concomitant]
     Active Substance: NAPROXEN
  18. AZITHROMYCIN [Concomitant]
     Active Substance: AZITHROMYCIN

REACTIONS (1)
  - Apnoea [None]
